FAERS Safety Report 20098942 (Version 2)
Quarter: 2021Q4

REPORT INFORMATION
  Report Type: Spontaneous
  Country: ES (occurrence: ES)
  Receive Date: 20211122
  Receipt Date: 20211207
  Transmission Date: 20220303
  Serious: Yes (Other)
  Sender: FDA-Public Use
  Company Number: ES-BAYER-2021A232148

PATIENT

DRUGS (1)
  1. EYLEA [Suspect]
     Active Substance: AFLIBERCEPT
     Indication: Glaucoma
     Dosage: TOTAL OF 4 DOSES OF EYLEA , LAST DOSE PRIOR THE EVENT WAS RECEIVED ON 16-SEP-2021
     Route: 031
     Dates: start: 20210518

REACTIONS (5)
  - Blindness [Unknown]
  - Retinal artery occlusion [Recovered/Resolved]
  - Intraocular pressure increased [Recovering/Resolving]
  - Off label use [Unknown]
  - Device use issue [Unknown]

NARRATIVE: CASE EVENT DATE: 20211014
